FAERS Safety Report 22040608 (Version 2)
Quarter: 2023Q1

REPORT INFORMATION
  Report Type: Spontaneous
  Country: FR (occurrence: FR)
  Receive Date: 20230227
  Receipt Date: 20230307
  Transmission Date: 20230418
  Serious: Yes (Other)
  Sender: FDA-Public Use
  Company Number: None

PATIENT
  Age: 12 Year
  Sex: Female
  Weight: 58 kg

DRUGS (4)
  1. NALBUPHINE [Interacting]
     Active Substance: NALBUPHINE
     Indication: Dysmenorrhoea
     Dosage: 11.6 MILLIGRAM, 1 TOTAL
     Route: 042
     Dates: start: 20230124, end: 20230124
  2. TRAMADOL [Interacting]
     Active Substance: TRAMADOL
     Indication: Dysmenorrhoea
     Dosage: 30 MILLIGRAM, 1 TOTAL
     Route: 048
     Dates: start: 20230124, end: 20230124
  3. ACETAMINOPHEN [Concomitant]
     Active Substance: ACETAMINOPHEN
     Dosage: 1 GRAM, 1 TOTAL
     Route: 048
     Dates: start: 20230124, end: 20230124
  4. HYDROXYZINE HYDROCHLORIDE [Concomitant]
     Active Substance: HYDROXYZINE HYDROCHLORIDE
     Dosage: 50 MILLIGRAM, 1 TOTAL
     Route: 048
     Dates: start: 20230124, end: 20230124

REACTIONS (3)
  - Disorientation [Recovered/Resolved]
  - Hallucination [Recovered/Resolved]
  - Drug interaction [Recovered/Resolved]

NARRATIVE: CASE EVENT DATE: 20230124
